FAERS Safety Report 7117094-5 (Version None)
Quarter: 2010Q4

REPORT INFORMATION
  Report Type: 
  Country: None (occurrence: None)
  Receive Date: 20101122
  Receipt Date: 20101115
  Transmission Date: 20110411
  Serious: Yes (Other)
  Sender: FDA-Public Use
  Company Number: US-PFIZER INC-2010150630

PATIENT
  Sex: Female
  Weight: 65.77 kg

DRUGS (5)
  1. VFEND [Suspect]
     Indication: RESPIRATORY TRACT INFECTION FUNGAL
     Dosage: 200 MG, 2X/DAY
     Route: 048
     Dates: start: 20101102, end: 20101104
  2. ASPIRIN [Concomitant]
     Dosage: UNK
  3. PLAVIX [Concomitant]
     Dosage: UNK
  4. METOPROLOL [Concomitant]
     Dosage: UNK
  5. CRESTOR [Concomitant]
     Dosage: UNK

REACTIONS (5)
  - AGITATION [None]
  - HALLUCINATION, VISUAL [None]
  - INSOMNIA [None]
  - MUSCLE SPASMS [None]
  - PHOTOPHOBIA [None]
